FAERS Safety Report 4398692-9 (Version None)
Quarter: 2004Q3

REPORT INFORMATION
  Report Type: 
  Country: None (occurrence: None)
  Receive Date: 20040712
  Receipt Date: 20040628
  Transmission Date: 20050211
  Serious: Yes (Hospitalization)
  Sender: FDA-Public Use
  Company Number: 04P-167-0265464-00

PATIENT
  Age: 58 Year
  Sex: Female

DRUGS (6)
  1. ERYTHROMYCIN BASE [Suspect]
     Indication: VIRAL INFECTION
     Dosage: 500 MG, 1 IN 1 D, PER ORAL
     Route: 048
     Dates: start: 20040602, end: 20040604
  2. ASPIRIN [Concomitant]
  3. ATENOLOL [Concomitant]
  4. SIMVASTATIN [Concomitant]
  5. THYROXINE [Concomitant]
  6. CONJUGATED ESTROGEN [Concomitant]

REACTIONS (3)
  - DUODENAL ULCER [None]
  - NAUSEA [None]
  - VOMITING [None]
